FAERS Safety Report 24770097 (Version 3)
Quarter: 2025Q3

REPORT INFORMATION
  Report Type: Spontaneous
  Country: JP (occurrence: JP)
  Receive Date: 20241224
  Receipt Date: 20250803
  Transmission Date: 20251021
  Serious: No
  Sender: ALEXION PHARMACEUTICALS
  Company Number: JP-ASTRAZENECA-240143143_032810_P_1

PATIENT
  Age: 65 Year
  Sex: Female
  Weight: 46 kg

DRUGS (11)
  1. BREZTRI [Suspect]
     Active Substance: BUDESONIDE\FORMOTEROL\GLYCOPYRROLATE
     Indication: Chronic obstructive pulmonary disease
     Dosage: 2 DOSAGE FORM, BID
     Dates: start: 20241203, end: 20241203
  2. SPIRONOLACTONE [Concomitant]
     Active Substance: SPIRONOLACTONE
     Indication: Right ventricular failure
     Dosage: 25 MILLIGRAM, QD
  3. SPIRONOLACTONE [Concomitant]
     Active Substance: SPIRONOLACTONE
     Indication: Oedema due to cardiac disease
  4. FUROSEMIDE [Concomitant]
     Active Substance: FUROSEMIDE
     Indication: Right ventricular failure
     Dosage: 20 MILLIGRAM, QD
  5. FUROSEMIDE [Concomitant]
     Active Substance: FUROSEMIDE
     Indication: Oedema due to cardiac disease
  6. TOLVAPTAN [Concomitant]
     Active Substance: TOLVAPTAN
     Indication: Right ventricular failure
     Dosage: 7.5 MILLIGRAM, QD
  7. TOLVAPTAN [Concomitant]
     Active Substance: TOLVAPTAN
     Indication: Oedema due to cardiac disease
  8. CANAGLIFLOZIN [Concomitant]
     Active Substance: CANAGLIFLOZIN
     Indication: Diabetes mellitus
     Dosage: 100 MILLIGRAM, QD
  9. AMITIZA [Concomitant]
     Active Substance: LUBIPROSTONE
     Indication: Constipation
     Dosage: 12 MILLIGRAM, QD
  10. MAGNESIUM OXIDE [Concomitant]
     Active Substance: MAGNESIUM OXIDE
     Indication: Diabetes mellitus
  11. SENNA [Concomitant]
     Active Substance: SENNOSIDES
     Indication: Diabetes mellitus
     Dosage: 80 MILLIGRAM, QD

REACTIONS (2)
  - Vomiting [Recovered/Resolved]
  - Nausea [Recovered/Resolved]

NARRATIVE: CASE EVENT DATE: 20241203
